FAERS Safety Report 6747750-X (Version None)
Quarter: 2010Q2

REPORT INFORMATION
  Report Type: 
  Country: None (occurrence: None)
  Receive Date: 20100528
  Receipt Date: 20100520
  Transmission Date: 20101027
  Serious: Yes (Other)
  Sender: FDA-Public Use
  Company Number: CA-ABBOTT-10P-028-0646332-00

PATIENT
  Sex: Male
  Weight: 73.548 kg

DRUGS (1)
  1. HUMIRA [Suspect]
     Indication: ANKYLOSING SPONDYLITIS
     Route: 058
     Dates: start: 20100324

REACTIONS (5)
  - INJECTION SITE ERYTHEMA [None]
  - INJECTION SITE OEDEMA [None]
  - INJECTION SITE PAIN [None]
  - INJECTION SITE PRURITUS [None]
  - INJECTION SITE WARMTH [None]
